FAERS Safety Report 8073269-2 (Version None)
Quarter: 2012Q1

REPORT INFORMATION
  Report Type: 
  Country: None (occurrence: None)
  Receive Date: 20120120
  Receipt Date: 20120104
  Transmission Date: 20120608
  Serious: Yes (Death)
  Sender: FDA-Public Use
  Company Number: 1158818

PATIENT
  Age: 27 Year
  Sex: Male

DRUGS (5)
  1. DIAZEPAM [Suspect]
  2. (COCAINE) [Suspect]
  3. ALPRAZOLAM [Suspect]
  4. (ACETAMINOPHEN W/DIPHENHYDRAMINE HYDROCHLORIDE) [Suspect]
  5. (HEROIN) [Suspect]

REACTIONS (4)
  - POISONING [None]
  - CARDIAC ARREST [None]
  - INTENTIONAL DRUG MISUSE [None]
  - RESPIRATORY ARREST [None]
